FAERS Safety Report 8372808-1 (Version None)
Quarter: 2012Q2

REPORT INFORMATION
  Report Type: 
  Country: None (occurrence: None)
  Receive Date: 20120521
  Receipt Date: 20120511
  Transmission Date: 20120825
  Serious: Yes (Hospitalization)
  Sender: FDA-Public Use
  Company Number: FI-SANOFI-AVENTIS-2012SA033469

PATIENT
  Age: 73 Year
  Sex: Male

DRUGS (4)
  1. JEVTANA KIT [Suspect]
     Dosage: FORM: CONCENTRATE AND SOLVENT FOR SOLUTION FOR INFUSION
     Route: 042
     Dates: start: 20111214
  2. FILGRASTIM [Concomitant]
     Dosage: DOSE AND FORM: 30 MU/0.5 ML SOLUTION FOR INFUSION/ INJECTION AFTER CYTOTOXIC DRUG
     Route: 058
     Dates: start: 20120209
  3. JEVTANA KIT [Suspect]
     Route: 042
     Dates: start: 20120410
  4. PREDNISOLONE [Concomitant]
     Dates: start: 20111214

REACTIONS (1)
  - PULMONARY EMBOLISM [None]
